FAERS Safety Report 12797883 (Version 1)
Quarter: 2016Q3

REPORT INFORMATION
  Report Type: Spontaneous
  Country: US (occurrence: US)
  Receive Date: 20160929
  Receipt Date: 20160929
  Transmission Date: 20161109
  Serious: Yes (Disabling)
  Sender: FDA-Public Use
  Company Number: None

PATIENT
  Age: 55 Year
  Sex: Female
  Weight: 67.5 kg

DRUGS (11)
  1. ESTRADIOL. [Concomitant]
     Active Substance: ESTRADIOL
  2. CLIMARA PRO [Concomitant]
     Active Substance: ESTRADIOL\LEVONORGESTREL
  3. CITRACAL +D3 [Concomitant]
  4. PROBIOTIC [Concomitant]
     Active Substance: PROBIOTICS NOS
  5. VITAMIN D [Concomitant]
     Active Substance: CHOLECALCIFEROL
  6. CIPROFLOXACIN. [Suspect]
     Active Substance: CIPROFLOXACIN
     Indication: DIVERTICULITIS
     Route: 048
     Dates: start: 20160725, end: 20160726
  7. ADVIL [Concomitant]
     Active Substance: IBUPROFEN
  8. LOW DOSE ASPIRIN [Concomitant]
     Active Substance: ASPIRIN
  9. SUPER BIO CURCUMIN (TUMERIC SUPPLEMENT) [Concomitant]
  10. FISH OIL [Concomitant]
     Active Substance: FISH OIL
  11. ZYRTEC [Concomitant]
     Active Substance: CETIRIZINE HYDROCHLORIDE

REACTIONS (2)
  - Arthralgia [None]
  - Paraesthesia [None]

NARRATIVE: CASE EVENT DATE: 20160726
